FAERS Safety Report 4828136-1 (Version None)
Quarter: 2005Q4

REPORT INFORMATION
  Report Type: 
  Country: None (occurrence: None)
  Receive Date: 20051109
  Receipt Date: 20051107
  Transmission Date: 20060501
  Serious: Yes (Hospitalization)
  Sender: FDA-Public Use
  Company Number: DEWYE118107NOV05

PATIENT
  Age: 27 Year
  Sex: Female

DRUGS (3)
  1. VENLAFAXINE HCL [Suspect]
     Dosage: 5 CAPSULES (OVERDOSE AMOUNT 375MG); ORAL
     Route: 048
     Dates: start: 20051105, end: 20051105
  2. ALCOHOL (ETHANOL, , 0) [Suspect]
     Dosage: HALF A BOTTLE OF RED WINE AND AN UNKNOWN AMOUNT OF LIQUORS; ORAL
     Route: 048
     Dates: start: 20051105, end: 20051105
  3. VOLTAREN [Suspect]
     Dosage: 8 TABLETS (OVERDOSE AMOUNT 400MG); ORAL
     Route: 048
     Dates: start: 20051105, end: 20051105

REACTIONS (2)
  - MULTIPLE DRUG OVERDOSE INTENTIONAL [None]
  - SUICIDE ATTEMPT [None]
